FAERS Safety Report 13572112 (Version 2)
Quarter: 2017Q3

REPORT INFORMATION
  Report Type: Spontaneous
  Country: US (occurrence: US)
  Receive Date: 20170523
  Receipt Date: 20170710
  Transmission Date: 20171127
  Serious: No
  Sender: FDA-Public Use
  Company Number: US-LEO PHARMA-302626

PATIENT
  Age: 49 Year
  Sex: Female

DRUGS (1)
  1. PICATO [Suspect]
     Active Substance: INGENOL MEBUTATE
     Indication: PRECANCEROUS SKIN LESION
     Route: 061
     Dates: start: 20170512, end: 20170512

REACTIONS (7)
  - Application site pruritus [Recovered/Resolved]
  - Application site vesicles [Recovered/Resolved]
  - Application site discharge [Recovered/Resolved]
  - Incorrect drug administration duration [Unknown]
  - Sleep disorder [Recovered/Resolved]
  - Application site scab [Recovered/Resolved]
  - Application site pain [Recovered/Resolved]

NARRATIVE: CASE EVENT DATE: 20170512
